FAERS Safety Report 9255797 (Version 2)
Quarter: 2013Q2

REPORT INFORMATION
  Report Type: Spontaneous
  Country: CO (occurrence: CO)
  Receive Date: 20130425
  Receipt Date: 20130523
  Transmission Date: 20140414
  Serious: Yes (Hospitalization)
  Sender: FDA-Public Use
  Company Number: CO-ABBOTT-13P-036-1080812-00

PATIENT
  Age: 21 Year
  Sex: Male
  Weight: 60 kg

DRUGS (3)
  1. HUMIRA [Suspect]
     Indication: PSORIASIS
     Route: 058
     Dates: start: 20120627, end: 20130228
  2. AMPICILLIN SULBACTAM [Concomitant]
     Indication: PRODUCT USED FOR UNKNOWN INDICATION
  3. CLARITHROMYCIN [Concomitant]
     Indication: PRODUCT USED FOR UNKNOWN INDICATION

REACTIONS (5)
  - Cough [Not Recovered/Not Resolved]
  - Cyanosis [Not Recovered/Not Resolved]
  - Weight decreased [Unknown]
  - Bronchiolitis [Unknown]
  - Pneumonia [Unknown]
